FAERS Safety Report 7929866-5 (Version None)
Quarter: 2011Q4

REPORT INFORMATION
  Report Type: 
  Country: None (occurrence: None)
  Receive Date: 20111121
  Receipt Date: 20111116
  Transmission Date: 20120403
  Serious: Yes (Other)
  Sender: FDA-Public Use
  Company Number: US-PFIZER INC-2011145156

PATIENT
  Sex: Female

DRUGS (3)
  1. PROZAC [Concomitant]
     Indication: DEPRESSION
     Dosage: UNK
  2. CHANTIX [Suspect]
     Indication: SMOKING CESSATION THERAPY
     Dosage: 1 MG, UNK
     Dates: start: 20081108, end: 20081114
  3. CHANTIX [Suspect]
     Dosage: 1 MG, UNK
     Dates: start: 20081121, end: 20081201

REACTIONS (3)
  - DEPRESSION [None]
  - SUICIDAL IDEATION [None]
  - ANXIETY [None]
